FAERS Safety Report 5216483-3 (Version None)
Quarter: 2006Q4

REPORT INFORMATION
  Report Type: 
  Country: None (occurrence: None)
  Receive Date: 20061129
  Receipt Date: 20031013
  Transmission Date: 20070319
  Serious: No
  Sender: FDA-Public Use
  Company Number: 2003UW07901

PATIENT
  Sex: Female

DRUGS (2)
  1. FASLODEX [Suspect]
     Indication: BREAST CANCER
     Dosage: 250 MG IM
     Route: 030
     Dates: start: 20020901, end: 20030601
  2. PAXIL [Concomitant]

REACTIONS (1)
  - DISEASE PROGRESSION [None]
